FAERS Safety Report 16223838 (Version 3)
Quarter: 2019Q4

REPORT INFORMATION
  Report Type: Spontaneous
  Country: US (occurrence: US)
  Receive Date: 20190422
  Receipt Date: 20191021
  Transmission Date: 20200122
  Serious: Yes (Death, Hospitalization, Other)
  Sender: FDA-Public Use
  Company Number: US-JNJFOC-20190432097

PATIENT
  Age: 59 Year
  Sex: Female

DRUGS (2)
  1. IMBRUVICA [Suspect]
     Active Substance: IBRUTINIB
     Dosage: 560 MG, UNK
     Route: 048
  2. IMBRUVICA [Suspect]
     Active Substance: IBRUTINIB
     Indication: PRODUCT USED FOR UNKNOWN INDICATION
     Route: 048
     Dates: end: 201902

REACTIONS (4)
  - Encephalopathy [Fatal]
  - Status epilepticus [Fatal]
  - Disease progression [Fatal]
  - Renal failure [Fatal]

NARRATIVE: CASE EVENT DATE: 201902
